FAERS Safety Report 7773172-9 (Version None)
Quarter: 2011Q3

REPORT INFORMATION
  Report Type: 
  Country: None (occurrence: None)
  Receive Date: 20110922
  Receipt Date: 20100818
  Transmission Date: 20111222
  Serious: Yes (Other)
  Sender: FDA-Public Use
  Company Number: US-ASTRAZENECA-2010SE19933

PATIENT
  Age: 339 Month
  Sex: Male
  Weight: 97.5 kg

DRUGS (15)
  1. SEROQUEL [Suspect]
     Route: 048
  2. SEROQUEL [Suspect]
     Indication: ANXIETY
     Route: 048
     Dates: start: 20100501, end: 20100502
  3. SEROQUEL [Suspect]
     Indication: DEPRESSION
     Route: 048
     Dates: start: 20100501, end: 20100502
  4. SEROQUEL [Suspect]
     Route: 048
     Dates: start: 20100501
  5. PEXEVA [Concomitant]
  6. SEROQUEL [Suspect]
     Route: 048
     Dates: start: 20100501
  7. SEROQUEL [Suspect]
     Route: 048
  8. SEROQUEL [Suspect]
     Route: 048
     Dates: start: 20100429
  9. LAMICTAL [Concomitant]
     Indication: BIPOLAR DISORDER
     Dates: start: 20090401
  10. SEROQUEL [Suspect]
     Indication: BIPOLAR DISORDER
     Route: 048
     Dates: start: 20100501, end: 20100502
  11. CLONAZEPAM [Concomitant]
  12. SEROQUEL [Suspect]
     Route: 048
     Dates: start: 20100501
  13. SEROQUEL [Suspect]
     Route: 048
  14. SEROQUEL [Suspect]
     Route: 048
     Dates: start: 20100429
  15. SEROQUEL [Suspect]
     Route: 048
     Dates: start: 20100429

REACTIONS (6)
  - SUICIDAL IDEATION [None]
  - DRUG DOSE OMISSION [None]
  - LETHARGY [None]
  - FEELING ABNORMAL [None]
  - TREATMENT NONCOMPLIANCE [None]
  - SOMNOLENCE [None]
